FAERS Safety Report 19739045 (Version 6)
Quarter: 2023Q2

REPORT INFORMATION
  Report Type: Report from Study
  Country: IT (occurrence: IT)
  Receive Date: 20210824
  Receipt Date: 20230424
  Transmission Date: 20230721
  Serious: Yes (Hospitalization, Other)
  Sender: FDA-Public Use
  Company Number: IT-ROCHE-2665052

PATIENT
  Age: 49 Year
  Sex: Female

DRUGS (2)
  1. METHOTREXATE [Suspect]
     Active Substance: METHOTREXATE
     Indication: Metastases to lymph nodes
     Dosage: UNK (ADMINISTERED AT C3D5)
     Route: 065
     Dates: start: 20200804
  2. OBINUTUZUMAB [Suspect]
     Active Substance: OBINUTUZUMAB
     Indication: Follicular lymphoma
     Dosage: 1000 MILLIGRAM, Q3W
     Route: 042
     Dates: start: 20200612

REACTIONS (10)
  - COVID-19 [Recovered/Resolved]
  - Neuropathy peripheral [Recovered/Resolved]
  - Acute kidney injury [Recovered/Resolved]
  - Constipation [Recovered/Resolved]
  - Muscle spasms [Recovered/Resolved]
  - Anaemia [Recovered/Resolved]
  - Arthralgia [Recovered/Resolved]
  - Paraesthesia [Recovered/Resolved]
  - Off label use [Unknown]
  - Intentional product use issue [Unknown]

NARRATIVE: CASE EVENT DATE: 20200804
